FAERS Safety Report 12270542 (Version 1)
Quarter: 2016Q2

REPORT INFORMATION
  Report Type: Spontaneous
  Country: US (occurrence: None)
  Receive Date: 20160414
  Receipt Date: 20160414
  Transmission Date: 20160815
  Serious: Yes (Disabling)
  Sender: FDA-Public Use
  Company Number: None

PATIENT
  Age: 69 Year
  Sex: Male
  Weight: 79.38 kg

DRUGS (8)
  1. COENZYME Q10 [Concomitant]
     Active Substance: UBIDECARENONE
  2. LIQUID CA/MG/VIT D3 [Concomitant]
  3. DHA (FISH OIL) [Concomitant]
  4. LUTEIN [Concomitant]
     Active Substance: LUTEIN
  5. LOW DOSE ASA [Concomitant]
  6. ENOXAPARIN [Suspect]
     Active Substance: ENOXAPARIN
     Indication: DEEP VEIN THROMBOSIS
     Dosage: 2 INJECTION(S) IN THE MORNING  GIVEN INTO/UNDER THE SKIN
     Route: 058
  7. LEVOTHYROXINE. [Concomitant]
     Active Substance: LEVOTHYROXINE
  8. BETA SITOSTEROL [Concomitant]

REACTIONS (2)
  - Influenza like illness [None]
  - Fatigue [None]

NARRATIVE: CASE EVENT DATE: 20160412
